FAERS Safety Report 17674933 (Version 1)
Quarter: 2020Q2

REPORT INFORMATION
  Report Type: Spontaneous
  Country: US (occurrence: US)
  Receive Date: 20200415
  Receipt Date: 20200415
  Transmission Date: 20200714
  Serious: Yes (Other)
  Sender: FDA-Public Use
  Company Number: None

PATIENT
  Age: 60 Year
  Sex: Female
  Weight: 69.85 kg

DRUGS (5)
  1. BIOTIN [Concomitant]
     Active Substance: BIOTIN
  2. ESOMEPRAZOLE MAGNESIUM. [Suspect]
     Active Substance: ESOMEPRAZOLE MAGNESIUM
     Indication: GASTROOESOPHAGEAL REFLUX DISEASE
     Dosage: ?          QUANTITY:1 CAPSULE ;?
     Route: 048
     Dates: start: 20190701, end: 20190708
  3. CENTRUM SILVER 50+ WOMEN [Concomitant]
  4. PROBIOTICS - RENEWLIFE (WOMEN^S CARE) [Concomitant]
  5. ESOMEPRAZOLE MAGNESIUM. [Suspect]
     Active Substance: ESOMEPRAZOLE MAGNESIUM
     Indication: HELICOBACTER INFECTION
     Dosage: ?          QUANTITY:1 CAPSULE ;?
     Route: 048
     Dates: start: 20190701, end: 20190708

REACTIONS (1)
  - Cough [None]

NARRATIVE: CASE EVENT DATE: 20190615
